FAERS Safety Report 13887756 (Version 2)
Quarter: 2017Q3

REPORT INFORMATION
  Report Type: Report from Study
  Country: US (occurrence: US)
  Receive Date: 20170821
  Receipt Date: 20170913
  Transmission Date: 20171127
  Serious: Yes (Hospitalization)
  Sender: FDA-Public Use
  Company Number: US-ACTELION-A-US2017-158204

PATIENT
  Age: 32 Year
  Sex: Female
  Weight: 78.46 kg

DRUGS (5)
  1. UPTRAVI [Suspect]
     Active Substance: SELEXIPAG
     Indication: PULMONARY HYPERTENSION
     Dosage: 600 MCG, BID
     Route: 048
  2. VELETRI [Suspect]
     Active Substance: EPOPROSTENOL
     Indication: PULMONARY HYPERTENSION
     Dosage: 6 NG/KG, PER MIN
     Route: 042
  3. SILDENAFIL. [Concomitant]
     Active Substance: SILDENAFIL
  4. UPTRAVI [Suspect]
     Active Substance: SELEXIPAG
     Dosage: 400 MCG, BID
     Route: 048
  5. REMODULIN [Concomitant]
     Active Substance: TREPROSTINIL
     Route: 058

REACTIONS (9)
  - Headache [Unknown]
  - Abdominal pain upper [Unknown]
  - Chest pain [Unknown]
  - Lung disorder [Unknown]
  - Flushing [Unknown]
  - Pain in jaw [Unknown]
  - Pain [Unknown]
  - Drug abuser [Unknown]
  - Nausea [Unknown]
